FAERS Safety Report 13448811 (Version 1)
Quarter: 2017Q2

REPORT INFORMATION
  Report Type: Spontaneous
  Country: US (occurrence: US)
  Receive Date: 20170417
  Receipt Date: 20170417
  Transmission Date: 20170830
  Serious: No
  Sender: FDA-Public Use
  Company Number: US-SHIONOGI, INC-2016001042

PATIENT
  Age: 63 Year
  Sex: Female

DRUGS (1)
  1. OSPHENA [Suspect]
     Active Substance: OSPEMIFENE
     Indication: PRODUCT USED FOR UNKNOWN INDICATION
     Dosage: UNK
     Route: 065
     Dates: start: 20160927

REACTIONS (4)
  - Hyperhidrosis [Unknown]
  - Urinary tract infection [Unknown]
  - Vulvovaginal burning sensation [None]
  - Vaginal discharge [Unknown]

NARRATIVE: CASE EVENT DATE: 201610
